FAERS Safety Report 4957435-8 (Version None)
Quarter: 2006Q1

REPORT INFORMATION
  Report Type: 
  Country: None (occurrence: None)
  Receive Date: 20060327
  Receipt Date: 20060315
  Transmission Date: 20060701
  Serious: Yes (Other)
  Sender: FDA-Public Use
  Company Number: 2006038076

PATIENT
  Age: 17 Year
  Sex: Female

DRUGS (1)
  1. NICOTINE [Suspect]
     Dosage: 24.9 MG ONE TIME, TRANSDERMAL
     Route: 062
     Dates: start: 20060314, end: 20060314

REACTIONS (8)
  - ASTHENIA [None]
  - BLOOD PRESSURE SYSTOLIC DECREASED [None]
  - DIZZINESS [None]
  - GASTROENTERITIS [None]
  - SCARLET FEVER [None]
  - SINUS TACHYCARDIA [None]
  - VISUAL DISTURBANCE [None]
  - VOMITING [None]
